FAERS Safety Report 4696878-7 (Version None)
Quarter: 2005Q2

REPORT INFORMATION
  Report Type: 
  Country: None (occurrence: None)
  Receive Date: 20050620
  Receipt Date: 20050608
  Transmission Date: 20051028
  Serious: Yes (Hospitalization)
  Sender: FDA-Public Use
  Company Number: 2005RL000043

PATIENT
  Age: 40 Year
  Sex: Female

DRUGS (14)
  1. NIZATIDINE [Suspect]
     Indication: GASTRITIS
     Dosage: 300 MG; QD; PO
     Route: 048
     Dates: start: 20041213, end: 20050202
  2. PAROXETINE HYDROCHLORIDE [Concomitant]
  3. ETHYL LOFLAZEPATE [Concomitant]
  4. LORMETAZEPAM [Concomitant]
  5. TRIAZOLAM [Concomitant]
  6. FLUNITRAZEPAM [Concomitant]
  7. CLOXAZOLAM [Concomitant]
  8. ITOPRIDE HYDROCHLORIDE [Concomitant]
  9. BROTIZOLAM [Concomitant]
  10. PANTETHINE [Concomitant]
  11. NITRAZEPAM [Concomitant]
  12. REBAMIPIDE [Concomitant]
  13. LORAZEPAM [Concomitant]
  14. ETIZOLAM [Concomitant]

REACTIONS (4)
  - ANAEMIA MACROCYTIC [None]
  - BONE MARROW DEPRESSION [None]
  - CONDITION AGGRAVATED [None]
  - PANCYTOPENIA [None]
